FAERS Safety Report 25531373 (Version 2)
Quarter: 2025Q3

REPORT INFORMATION
  Report Type: Report from Study
  Country: ZA (occurrence: ZA)
  Receive Date: 20250708
  Receipt Date: 20250803
  Transmission Date: 20251020
  Serious: Yes (Other)
  Sender: ALEXION PHARMACEUTICALS
  Company Number: ZA-AstraZeneca-CH-00749732A

PATIENT
  Age: 76 Year
  Sex: Male
  Weight: 75 kg

DRUGS (10)
  1. BUDESONIDE\FORMOTEROL FUMARATE DIHYDRATE [Suspect]
     Active Substance: BUDESONIDE\FORMOTEROL FUMARATE DIHYDRATE
     Indication: Asthma
  2. ESOMEPRAZOLE [Concomitant]
     Active Substance: ESOMEPRAZOLE
     Indication: Ulcer
  3. HYDROCHLOROTHIAZIDE [Concomitant]
     Active Substance: HYDROCHLOROTHIAZIDE
     Indication: Hypertension
  4. MONTELUKAST SODIUM [Concomitant]
     Active Substance: MONTELUKAST SODIUM
     Indication: Asthma
  5. TIOTROPIUM BROMIDE [Concomitant]
     Active Substance: TIOTROPIUM BROMIDE
     Indication: Chronic obstructive pulmonary disease
  6. CITALOPRAM HYDROBROMIDE [Concomitant]
     Active Substance: CITALOPRAM HYDROBROMIDE
     Indication: Mental disorder
  7. Synaleve [Concomitant]
     Indication: Pain
  8. ETORICOXIB [Concomitant]
     Active Substance: ETORICOXIB
  9. MOMETASONE FUROATE [Concomitant]
     Active Substance: MOMETASONE FUROATE
     Indication: Hypersensitivity
  10. DUTASTERIDE\TAMSULOSIN HYDROCHLORIDE [Concomitant]
     Active Substance: DUTASTERIDE\TAMSULOSIN HYDROCHLORIDE
     Indication: Prostatomegaly

REACTIONS (1)
  - Skin cancer [Not Recovered/Not Resolved]
